FAERS Safety Report 17682596 (Version 2)
Quarter: 2020Q3

REPORT INFORMATION
  Report Type: Spontaneous
  Country: DE (occurrence: DE)
  Receive Date: 20200419
  Receipt Date: 20200923
  Transmission Date: 20201102
  Serious: Yes (Death, Other)
  Sender: FDA-Public Use
  Company Number: DE-ASTRAZENECA-2020SE51195

PATIENT
  Sex: Female

DRUGS (2)
  1. FULVESTRANT. [Suspect]
     Active Substance: FULVESTRANT
     Indication: BREAST CANCER FEMALE
     Dosage: UNK
     Route: 030
     Dates: start: 201809, end: 201904
  2. RIBOCICLIB. [Suspect]
     Active Substance: RIBOCICLIB
     Indication: BREAST CANCER FEMALE
     Dosage: UNK
     Route: 048
     Dates: start: 201809, end: 201904

REACTIONS (3)
  - Death [Fatal]
  - Malignant neoplasm progression [Unknown]
  - Breast cancer [Unknown]

NARRATIVE: CASE EVENT DATE: 201904
